FAERS Safety Report 8969799 (Version 2)
Quarter: 2013Q1

REPORT INFORMATION
  Report Type: Spontaneous
  Country: US (occurrence: US)
  Receive Date: 20121218
  Receipt Date: 20130211
  Transmission Date: 20140127
  Serious: Yes (Death)
  Sender: FDA-Public Use
  Company Number: US-INCYTE CORPORATION-2012IN002604

PATIENT
  Sex: Female
  Weight: 70.3 kg

DRUGS (1)
  1. JAKAFI [Suspect]
     Indication: MYELOFIBROSIS
     Dosage: 10 MG, BID
     Route: 048
     Dates: start: 20120817

REACTIONS (4)
  - Iron overload [Fatal]
  - Cardiac failure congestive [Fatal]
  - Hepatic cirrhosis [Fatal]
  - Abdominal discomfort [Unknown]
